FAERS Safety Report 6840609-9 (Version None)
Quarter: 2010Q3

REPORT INFORMATION
  Report Type: 
  Country: None (occurrence: None)
  Receive Date: 20100714
  Receipt Date: 20100709
  Transmission Date: 20110219
  Serious: Yes (Hospitalization)
  Sender: FDA-Public Use
  Company Number: R0008675B

PATIENT
  Sex: Female

DRUGS (6)
  1. BLINDED VACCINE [Suspect]
     Route: 030
     Dates: start: 20090930, end: 20090930
  2. ONDANSETRON [Suspect]
     Indication: THERAPEUTIC PROCEDURE
     Dosage: 8MCG PER DAY
     Route: 048
     Dates: start: 20100104, end: 20100105
  3. DOCETAXEL [Suspect]
     Indication: CHEMOTHERAPY
     Dosage: 135MCG PER DAY
     Route: 042
     Dates: start: 20100104
  4. DECADRON [Suspect]
     Indication: THERAPEUTIC PROCEDURE
     Dosage: 500MCG PER DAY
     Route: 048
     Dates: start: 20100103, end: 20100107
  5. CYCLOPHOSPHAMIDE [Suspect]
     Indication: CHEMOTHERAPY
     Dosage: 1110MCG PER DAY
     Route: 042
     Dates: start: 20100104
  6. AREPANRIX H1N1 [Concomitant]
     Route: 030
     Dates: start: 20091122, end: 20091122

REACTIONS (1)
  - FEBRILE NEUTROPENIA [None]
